FAERS Safety Report 26148725 (Version 1)
Quarter: 2025Q4

REPORT INFORMATION
  Report Type: Spontaneous
  Country: US (occurrence: US)
  Receive Date: 20251212
  Receipt Date: 20251212
  Transmission Date: 20260117
  Serious: Yes (Hospitalization)
  Sender: STRIDES
  Company Number: US-STRIDES ARCOLAB LIMITED-2025SP004689

PATIENT
  Age: 80 Year
  Sex: Female

DRUGS (2)
  1. OLANZAPINE [Suspect]
     Active Substance: OLANZAPINE
     Indication: Phagophobia
     Dosage: 2.5 MILLIGRAM, BEFORE MEALS
     Route: 048
  2. LORAZEPAM [Suspect]
     Active Substance: LORAZEPAM
     Indication: Phagophobia
     Dosage: 0.25 MILLIGRAM, BEFORE MEALS
     Route: 042

REACTIONS (2)
  - Sedation [Unknown]
  - Drug ineffective for unapproved indication [Unknown]
